FAERS Safety Report 10051285 (Version 1)
Quarter: 2014Q2

REPORT INFORMATION
  Report Type: Spontaneous
  Country: US (occurrence: US)
  Receive Date: 20140401
  Receipt Date: 20140401
  Transmission Date: 20141212
  Serious: No
  Sender: FDA-Public Use
  Company Number: US-PFIZER INC-2014089804

PATIENT
  Age: 37 Year
  Sex: Female
  Weight: 59.86 kg

DRUGS (1)
  1. LEVOXYL [Suspect]
     Dosage: 112 UG, UNK

REACTIONS (2)
  - Blood thyroid stimulating hormone decreased [Unknown]
  - Intentional product misuse [Unknown]
